FAERS Safety Report 11138167 (Version 1)
Quarter: 2015Q2

REPORT INFORMATION
  Report Type: Spontaneous
  Country: JP (occurrence: JP)
  Receive Date: 20150526
  Receipt Date: 20150526
  Transmission Date: 20150821
  Serious: Yes (Hospitalization, Other)
  Sender: FDA-Public Use
  Company Number: PHJP2015JP008110

PATIENT
  Age: 72 Year
  Sex: Male

DRUGS (6)
  1. EVEROLIMUS [Suspect]
     Active Substance: EVEROLIMUS
     Dosage: 5 MG, QD (FOR 3 TIMES A WEEK)
     Route: 048
     Dates: start: 20150309
  2. SUNITINIB [Suspect]
     Active Substance: SUNITINIB
     Dosage: 25 MG, QD (DAILY)
     Route: 048
     Dates: start: 20130212, end: 20130521
  3. EVEROLIMUS [Suspect]
     Active Substance: EVEROLIMUS
     Indication: RENAL CELL CARCINOMA
     Dosage: 10 MG, QD (DAILY)
     Route: 048
     Dates: start: 20130521
  4. EVEROLIMUS [Suspect]
     Active Substance: EVEROLIMUS
     Dosage: 5 MG, QD (DAILY)
     Route: 048
     Dates: start: 20130618, end: 20150217
  5. ZOLEDRONATE [Suspect]
     Active Substance: ZOLEDRONIC ACID
     Indication: METASTASES TO BONE
     Dosage: UNK
     Route: 041
     Dates: start: 20130212, end: 20141121
  6. SUNITINIB [Suspect]
     Active Substance: SUNITINIB
     Indication: METASTATIC RENAL CELL CARCINOMA
     Dosage: 25 MG, QD (DAILY)
     Route: 065
     Dates: start: 20130108, end: 20130122

REACTIONS (9)
  - Pericardial effusion [Not Recovered/Not Resolved]
  - Osteonecrosis of jaw [Unknown]
  - Oedema peripheral [Recovered/Resolved]
  - Stomatitis [Unknown]
  - Cough [Recovered/Resolved]
  - Pleural effusion [Recovered/Resolved]
  - Rash [Unknown]
  - Dyspnoea [Recovered/Resolved]
  - Blood glucose increased [Unknown]

NARRATIVE: CASE EVENT DATE: 20130618
